FAERS Safety Report 7741964-8 (Version None)
Quarter: 2011Q3

REPORT INFORMATION
  Report Type: 
  Country: None (occurrence: None)
  Receive Date: 20110907
  Receipt Date: 20110907
  Transmission Date: 20111222
  Serious: Yes (Hospitalization)
  Sender: FDA-Public Use
  Company Number: None

PATIENT
  Sex: Male
  Weight: 93.6 kg

DRUGS (1)
  1. CISPLATIN [Suspect]
     Dosage: 91.5 MG

REACTIONS (3)
  - ORTHOSTATIC HYPOTENSION [None]
  - SYNCOPE [None]
  - DEHYDRATION [None]
